FAERS Safety Report 19856715 (Version 3)
Quarter: 2022Q1

REPORT INFORMATION
  Report Type: Report from Study
  Country: US (occurrence: US)
  Receive Date: 20210920
  Receipt Date: 20220323
  Transmission Date: 20220423
  Serious: Yes (Hospitalization, Other)
  Sender: FDA-Public Use
  Company Number: US-BOEHRINGERINGELHEIM-2021-BI-095088

PATIENT
  Age: 69 Year
  Sex: Female
  Weight: 64.9 kg

DRUGS (52)
  1. OFEV [Suspect]
     Active Substance: NINTEDANIB
     Indication: Pulmonary fibrosis
     Route: 048
     Dates: start: 20190702
  2. OFEV [Suspect]
     Active Substance: NINTEDANIB
     Route: 048
     Dates: start: 20210909
  3. LASIX [Concomitant]
     Active Substance: FUROSEMIDE
     Indication: Oedema peripheral
     Route: 048
     Dates: start: 20160818
  4. LASIX [Concomitant]
     Active Substance: FUROSEMIDE
     Indication: Peripheral swelling
     Route: 048
     Dates: start: 20200107, end: 20200112
  5. LASIX [Concomitant]
     Active Substance: FUROSEMIDE
     Route: 048
     Dates: start: 20200123
  6. PROAIR HFA [Concomitant]
     Active Substance: ALBUTEROL SULFATE
     Indication: Dyspnoea
     Dosage: 12 PUFF
     Route: 055
     Dates: start: 2005
  7. Ipratropium-albuterol (duoneb) [Concomitant]
     Indication: Dyspnoea
     Dosage: 2MG-12MG?3ML/DOSE
     Route: 055
     Dates: start: 20161230
  8. FOSAMAX [Concomitant]
     Active Substance: ALENDRONATE SODIUM
     Indication: Osteoporosis
     Route: 048
     Dates: start: 201608
  9. XANAX [Concomitant]
     Active Substance: ALPRAZOLAM
     Indication: Anxiety
     Route: 048
     Dates: start: 2016
  10. ASPIRIN [Concomitant]
     Active Substance: ASPIRIN
     Indication: Prophylaxis
     Route: 048
     Dates: start: 20070508
  11. DIPROLENE [Concomitant]
     Active Substance: BETAMETHASONE DIPROPIONATE
     Indication: Herpes zoster
     Route: 061
     Dates: start: 20170623
  12. ZOCOR [Concomitant]
     Active Substance: SIMVASTATIN
     Indication: Hypercholesterolaemia
     Route: 048
     Dates: start: 20170608, end: 20180731
  13. ZOCOR [Concomitant]
     Active Substance: SIMVASTATIN
     Dosage: ONGOING
     Route: 048
     Dates: start: 20180801
  14. Acyclovir (zovirax) [Concomitant]
     Indication: Herpes zoster
     Route: 048
     Dates: start: 20180828
  15. CAPSAICIN [Concomitant]
     Active Substance: CAPSAICIN
     Indication: Post herpetic neuralgia
     Route: 061
     Dates: start: 20170620
  16. CAPSAICIN [Concomitant]
     Active Substance: CAPSAICIN
     Indication: Herpes zoster
  17. HUMALOG [Concomitant]
     Active Substance: INSULIN LISPRO
     Indication: Type 2 diabetes mellitus
     Dosage: 100 IU/ML
     Route: 058
     Dates: start: 20150721
  18. BIOTIN [Concomitant]
     Active Substance: BIOTIN
     Indication: Supplementation therapy
     Route: 048
  19. BIOTIN [Concomitant]
     Active Substance: BIOTIN
     Indication: Prophylaxis
  20. calcium carbonate - vitamin D (oscal 500+D) [Concomitant]
     Indication: Osteoporosis
     Dosage: 1 TAB
     Route: 048
     Dates: start: 20160819
  21. cyanocobalmin (vitamin b12) [Concomitant]
     Indication: Vitamin B12 deficiency
     Route: 030
     Dates: start: 2015
  22. cyanocobalmin (vitamin b12) [Concomitant]
     Indication: Prophylaxis
  23. norpramin (desimpramine) [Concomitant]
     Indication: Anxiety
     Dosage: 30MG (10 TDS)
     Route: 048
     Dates: start: 20170515
  24. COLACE [Concomitant]
     Active Substance: DOCUSATE SODIUM
     Indication: Constipation
     Route: 048
     Dates: start: 20150929
  25. GLUCOPHAGE [Concomitant]
     Active Substance: METFORMIN HYDROCHLORIDE
     Indication: Type 2 diabetes mellitus
     Route: 048
     Dates: start: 20160819
  26. SINGULAIR [Concomitant]
     Active Substance: MONTELUKAST SODIUM
     Indication: Seasonal allergy
     Route: 048
     Dates: start: 20170501
  27. SINGULAIR [Concomitant]
     Active Substance: MONTELUKAST SODIUM
     Indication: Rhinitis
  28. BACTROBAN [Concomitant]
     Active Substance: MUPIROCIN\MUPIROCIN CALCIUM
     Indication: Herpes zoster
     Route: 061
     Dates: start: 20170424
  29. PREDNISONE [Concomitant]
     Active Substance: PREDNISONE
     Indication: Interstitial lung disease
     Route: 048
     Dates: start: 20170711, end: 20190723
  30. PREDNISONE [Concomitant]
     Active Substance: PREDNISONE
     Route: 048
     Dates: start: 20190723
  31. OMEGA-3 FATTY ACIDS [Concomitant]
     Active Substance: OMEGA-3 FATTY ACIDS
     Indication: Supplementation therapy
     Route: 048
     Dates: start: 20100110
  32. ZOFRAN [Concomitant]
     Active Substance: ONDANSETRON HYDROCHLORIDE
     Indication: Prophylaxis
     Route: 048
     Dates: start: 20150511
  33. ZOFRAN [Concomitant]
     Active Substance: ONDANSETRON HYDROCHLORIDE
     Indication: Nausea
  34. ZOFRAN [Concomitant]
     Active Substance: ONDANSETRON HYDROCHLORIDE
     Indication: Vomiting
  35. K-DUR [Concomitant]
     Active Substance: POTASSIUM CHLORIDE
     Indication: Mineral supplementation
     Route: 048
     Dates: start: 20160613
  36. DOC-Q-LAX [Concomitant]
     Indication: Constipation
     Dosage: 8.6/50 MG
     Route: 048
     Dates: start: 20151222
  37. FLONASE [Concomitant]
     Active Substance: FLUTICASONE PROPIONATE
     Indication: Seasonal allergy
     Dosage: NASAL SPRAY
     Route: 055
     Dates: start: 20160818
  38. NEURONTIN [Concomitant]
     Active Substance: GABAPENTIN
     Indication: Herpes zoster
     Route: 048
     Dates: start: 20171110
  39. NEURONTIN [Concomitant]
     Active Substance: GABAPENTIN
     Indication: Post herpetic neuralgia
  40. KENALOG [Concomitant]
     Active Substance: TRIAMCINOLONE ACETONIDE
     Indication: Fungal skin infection
     Route: 061
     Dates: start: 20210122
  41. cellecept [Concomitant]
     Indication: Dermatomyositis
     Route: 048
     Dates: start: 20200128
  42. CELEXA [Concomitant]
     Active Substance: CITALOPRAM HYDROBROMIDE
     Indication: Major depression
     Route: 048
     Dates: start: 20190829
  43. SYNTHROID [Concomitant]
     Active Substance: LEVOTHYROXINE SODIUM
     Indication: Hypothyroidism
     Route: 048
     Dates: start: 20160819
  44. SYNTHROID [Concomitant]
     Active Substance: LEVOTHYROXINE SODIUM
     Route: 048
     Dates: start: 20190509
  45. ERGOCALCIFEROL [Concomitant]
     Active Substance: ERGOCALCIFEROL
     Indication: Osteoporosis
     Route: 048
     Dates: start: 20100908
  46. PEPCID [Concomitant]
     Active Substance: FAMOTIDINE
     Indication: Prophylaxis
     Route: 048
     Dates: start: 20160517
  47. PEPCID [Concomitant]
     Active Substance: FAMOTIDINE
     Indication: Dyspepsia
  48. LIDEX (FLUCINONIDE) [Concomitant]
     Indication: Dermatomyositis
     Route: 061
     Dates: start: 20151222
  49. NIZORAL (KETOCONAZOLE) SHAMPOO [Concomitant]
     Indication: Pruritus
     Route: 061
     Dates: start: 20160819
  50. LIDOCAINE [Concomitant]
     Active Substance: LIDOCAINE
     Indication: Dermatomyositis
     Route: 061
     Dates: start: 20170515
  51. MOBIC [Concomitant]
     Active Substance: MELOXICAM
     Indication: Myalgia
     Route: 048
     Dates: start: 20160818
  52. MOBIC [Concomitant]
     Active Substance: MELOXICAM
     Indication: Fracture

REACTIONS (4)
  - Sinus arrest [Recovered/Resolved]
  - Device related infection [Not Recovered/Not Resolved]
  - Abnormal loss of weight [Not Recovered/Not Resolved]
  - Impaired healing [Recovered/Resolved]

NARRATIVE: CASE EVENT DATE: 20210315
